FAERS Safety Report 9351844 (Version 1)
Quarter: 2013Q2

REPORT INFORMATION
  Report Type: Spontaneous
  Country: US (occurrence: US)
  Receive Date: 20130617
  Receipt Date: 20130617
  Transmission Date: 20140414
  Serious: Yes (Hospitalization)
  Sender: FDA-Public Use
  Company Number: US-ASTRAZENECA-2012SE36496

PATIENT
  Age: 76 Year
  Sex: Female
  Weight: 104.8 kg

DRUGS (8)
  1. NEXIUM [Suspect]
     Indication: GASTROOESOPHAGEAL REFLUX DISEASE
     Dosage: DAILY
     Route: 048
     Dates: start: 20090211, end: 20130424
  2. NEXIUM [Suspect]
     Indication: GASTROOESOPHAGEAL REFLUX DISEASE
     Route: 048
     Dates: start: 20090211
  3. ZANTAC [Concomitant]
     Dates: start: 2001
  4. DILTIAZEM [Concomitant]
     Dates: start: 20090112
  5. CRESTOR [Concomitant]
     Dates: start: 20090112
  6. SULFAMETHOXAZOLE [Concomitant]
     Dates: start: 20100123
  7. SINGULAIR [Concomitant]
  8. PROVENTIL [Concomitant]
     Dates: start: 20100212

REACTIONS (14)
  - Pneumonia [Unknown]
  - Cardiac disorder [Unknown]
  - Osteoporosis [Unknown]
  - Multiple fractures [Unknown]
  - Foot fracture [Unknown]
  - Ankle fracture [Unknown]
  - Angina pectoris [Unknown]
  - Arthritis [Unknown]
  - Calcium deficiency [Unknown]
  - Cataract [Unknown]
  - Lung disorder [Unknown]
  - Rheumatoid arthritis [Unknown]
  - Vitamin D deficiency [Unknown]
  - Bone disorder [Unknown]
